FAERS Safety Report 7080907-X (Version None)
Quarter: 2010Q4

REPORT INFORMATION
  Report Type: 
  Country: None (occurrence: None)
  Receive Date: 20101103
  Receipt Date: 20101027
  Transmission Date: 20110411
  Serious: Yes (Hospitalization, Other)
  Sender: FDA-Public Use
  Company Number: US-SANOFI-AVENTIS-2010SA066144

PATIENT
  Age: 68 Year
  Sex: Female
  Weight: 73 kg

DRUGS (6)
  1. SOLOSTAR [Suspect]
     Indication: LATENT AUTOIMMUNE DIABETES IN ADULTS
     Dates: start: 20040101
  2. SOLOSTAR [Suspect]
     Dates: start: 20040101
  3. LANTUS [Suspect]
     Indication: LATENT AUTOIMMUNE DIABETES IN ADULTS
     Dosage: DOSE:44 UNIT(S)
     Route: 058
     Dates: start: 20040101
  4. APIDRA [Suspect]
     Indication: LATENT AUTOIMMUNE DIABETES IN ADULTS
     Dosage: DOSE:9 UNIT(S)
     Route: 065
     Dates: start: 20040101
  5. HYDROCORTISONE [Suspect]
     Route: 065
     Dates: start: 20040101
  6. IMMU-G [Concomitant]

REACTIONS (7)
  - ADRENAL INSUFFICIENCY [None]
  - BLOOD GLUCOSE ABNORMAL [None]
  - FATIGUE [None]
  - HAEMORRHAGIC STROKE [None]
  - MALAISE [None]
  - WEIGHT INCREASED [None]
  - WRONG DRUG ADMINISTERED [None]
